FAERS Safety Report 9460520 (Version 1)
Quarter: 2013Q3

REPORT INFORMATION
  Report Type: Spontaneous
  Country: DK (occurrence: AU)
  Receive Date: 20130815
  Receipt Date: 20130815
  Transmission Date: 20140515
  Serious: Yes (Death, Hospitalization)
  Sender: FDA-Public Use
  Company Number: AU-FRI-1000047852

PATIENT
  Age: 0 Day
  Sex: Female

DRUGS (2)
  1. ESCITALOPRAM [Suspect]
     Dosage: 20 MG
     Route: 064
     Dates: start: 20120215
  2. SEROQUEL [Suspect]
     Route: 064
     Dates: start: 20110615

REACTIONS (6)
  - Microencephaly [Fatal]
  - Peritoneal haemorrhage [Fatal]
  - Necrotising colitis [Fatal]
  - Escherichia sepsis [Fatal]
  - Premature delivery [Fatal]
  - Foetal exposure during pregnancy [Fatal]
